FAERS Safety Report 18299347 (Version 2)
Quarter: 2020Q3

REPORT INFORMATION
  Report Type: Spontaneous
  Country: US (occurrence: US)
  Receive Date: 20200922
  Receipt Date: 20200923
  Transmission Date: 20201103
  Serious: No
  Sender: FDA-Public Use
  Company Number: US-009507513-2009USA008509

PATIENT
  Age: 64 Year
  Sex: Male

DRUGS (5)
  1. LEVOFLOXACIN. [Concomitant]
     Active Substance: LEVOFLOXACIN
     Indication: MEDICAL DEVICE SITE INFECTION
     Dosage: UNK
  2. VANCOMYCIN [Suspect]
     Active Substance: VANCOMYCIN
  3. CUBICIN [Suspect]
     Active Substance: DAPTOMYCIN
  4. RIFABUTIN. [Concomitant]
     Active Substance: RIFABUTIN
     Indication: MEDICAL DEVICE SITE INFECTION
     Dosage: UNK
  5. PENICILLIN (UNSPECIFIED) [Suspect]
     Active Substance: PENICILLIN

REACTIONS (1)
  - Drug hypersensitivity [Unknown]
